FAERS Safety Report 18541156 (Version 1)
Quarter: 2020Q4

REPORT INFORMATION
  Report Type: Spontaneous
  Country: US (occurrence: US)
  Receive Date: 20201124
  Receipt Date: 20201124
  Transmission Date: 20210114
  Serious: No
  Sender: FDA-Public Use
  Company Number: US-PFIZER INC-2020402031

PATIENT
  Age: 41 Year
  Sex: Female

DRUGS (1)
  1. SYNAREL [Suspect]
     Active Substance: NAFARELIN ACETATE
     Dosage: UNK

REACTIONS (3)
  - Neuralgia [Unknown]
  - Musculoskeletal disorder [Unknown]
  - Nervous system disorder [Unknown]
